FAERS Safety Report 14179986 (Version 13)
Quarter: 2019Q3

REPORT INFORMATION
  Report Type: Spontaneous
  Country: US (occurrence: US)
  Receive Date: 20171110
  Receipt Date: 20190905
  Transmission Date: 20191004
  Serious: No
  Sender: FDA-Public Use
  Company Number: US-PFIZER INC-2017484715

PATIENT
  Age: 65 Year
  Sex: Female
  Weight: 65 kg

DRUGS (23)
  1. IBRANCE [Suspect]
     Active Substance: PALBOCICLIB
     Dosage: UNK
  2. PAROXETINE HCL [Concomitant]
     Active Substance: PAROXETINE HYDROCHLORIDE
     Dosage: 20 MG, DAILY
     Route: 048
  3. PROCHLORPERAZINE MALEATE. [Concomitant]
     Active Substance: PROCHLORPERAZINE MALEATE
     Dosage: 10 MG, AS NEEDED, Q 6 HOURS PRN
     Dates: start: 20180904
  4. IBRANCE [Suspect]
     Active Substance: PALBOCICLIB
     Dosage: UNK
     Route: 048
  5. PREVACID [Concomitant]
     Active Substance: LANSOPRAZOLE
     Dosage: 20 MG, 2X/DAY
     Route: 048
     Dates: start: 2012
  6. IBRANCE [Suspect]
     Active Substance: PALBOCICLIB
     Dosage: 100MG, CYCLIC (DAY 1-21 EVERY 28 DAYS)
     Route: 048
     Dates: start: 201710
  7. IBRANCE [Suspect]
     Active Substance: PALBOCICLIB
     Dosage: UNK
     Route: 048
  8. GABAPENTIN. [Concomitant]
     Active Substance: GABAPENTIN
     Dosage: 400 MG, DAILY
     Route: 048
     Dates: start: 20180821
  9. PHENERGAN [Concomitant]
     Active Substance: PROMETHAZINE HYDROCHLORIDE
     Indication: MIGRAINE
     Dosage: UNK UNK, AS NEEDED
  10. SUDAFED [Concomitant]
     Active Substance: PSEUDOEPHEDRINE HYDROCHLORIDE
     Dosage: 30 MG, AS NEEDED, DAILY PRN
     Route: 048
  11. IBRANCE [Suspect]
     Active Substance: PALBOCICLIB
     Indication: BREAST CANCER METASTATIC
     Dosage: 125 MG, CYCLIC (DAY 1-21 EVERY 28 DAYS)
     Route: 048
     Dates: start: 20171024, end: 201710
  12. FERRALET [FERROUS GLUCONATE] [Concomitant]
     Dosage: 1 DF, DAILY (90-1 MG)
     Route: 048
  13. IBRANCE [Suspect]
     Active Substance: PALBOCICLIB
     Dosage: UNK
     Route: 048
  14. FASLODEX [Concomitant]
     Active Substance: FULVESTRANT
     Dosage: MANTEINANCE PHASE 1 WITH PALBOCICIB
  15. CHOLECALCIFEROL [Concomitant]
     Active Substance: CHOLECALCIFEROL
     Dosage: 50000 IU, DAILY Q (EVERY) 7 DAYS)
     Route: 048
     Dates: start: 20150211
  16. CALCIUM EFFERVESCENT [Concomitant]
     Dosage: 20 MEQ, 2X/DAY
     Route: 048
  17. ACETAMINOPHEN;HYDROCODONE [Concomitant]
     Active Substance: ACETAMINOPHEN\HYDROCODONE
     Dosage: UNK, AS NEEDED 1-2 (5-325MG) TABLET ORAL Q (EVERY) 4 HOURS PRN; OCCASIONALY ABOUT 5 PILLS A MONTH
     Route: 048
  18. IBRANCE [Suspect]
     Active Substance: PALBOCICLIB
     Dosage: UNK
     Route: 048
  19. NALBUPHINE HCL [Concomitant]
     Active Substance: NALBUPHINE HYDROCHLORIDE
     Indication: MIGRAINE
     Dosage: UNK UNK, AS NEEDED
  20. BUTALBITAL/ASA/CAFFEINE [Concomitant]
     Active Substance: ASPIRIN\BUTALBITAL\CAFFEINE
     Indication: MIGRAINE
     Dosage: 1 DF, AS NEEDED (50-325/358-40 MG) Q (EVERY) 4 HOURS
     Route: 048
  21. CALCIUM [Concomitant]
     Active Substance: CALCIUM
     Dosage: 1500 MG, DAILY
     Route: 048
     Dates: start: 20150415
  22. CYCLOBENZAPRINE HCL [Concomitant]
     Active Substance: CYCLOBENZAPRINE HYDROCHLORIDE
     Dosage: 10 MG, AS NEEDED B.I.D (TWICE A DAY) PRN
     Route: 048
  23. GLUCOSAMINE SULPHATE [Concomitant]
     Active Substance: GLUCOSAMINE
     Dosage: 1000 MG, 2X/DAY
     Route: 048

REACTIONS (11)
  - Fatigue [Not Recovered/Not Resolved]
  - Pain [Not Recovered/Not Resolved]
  - Neoplasm progression [Unknown]
  - Nausea [Recovered/Resolved]
  - Bone pain [Not Recovered/Not Resolved]
  - White blood cell count decreased [Recovered/Resolved]
  - Alopecia [Recovered/Resolved]
  - Blood potassium decreased [Recovered/Resolved]
  - Product dose omission [Recovered/Resolved]
  - Insomnia [Not Recovered/Not Resolved]
  - Hot flush [Recovered/Resolved]

NARRATIVE: CASE EVENT DATE: 20190522
